FAERS Safety Report 5576493-3 (Version None)
Quarter: 2007Q4

REPORT INFORMATION
  Report Type: 
  Country: None (occurrence: None)
  Receive Date: 20071228
  Receipt Date: 20071220
  Transmission Date: 20080405
  Serious: Yes (Death)
  Sender: FDA-Public Use
  Company Number: A0698627A

PATIENT
  Age: 68 Year
  Sex: Male
  Weight: 75 kg

DRUGS (6)
  1. SERETIDE [Suspect]
     Indication: CHRONIC OBSTRUCTIVE PULMONARY DISEASE
     Route: 055
     Dates: start: 20060101, end: 20070803
  2. PREDNISOLONE [Concomitant]
     Indication: CHRONIC OBSTRUCTIVE PULMONARY DISEASE
     Dates: start: 20060201, end: 20060801
  3. SPIRIVA [Concomitant]
     Dates: start: 20060201, end: 20060801
  4. OMEPRAZOLE [Concomitant]
     Dates: start: 20060201, end: 20060801
  5. LOPRIL [Concomitant]
     Dates: start: 19970101, end: 20060801
  6. LEXAPRO [Concomitant]
     Dates: start: 20060401, end: 20060801

REACTIONS (1)
  - INFARCTION [None]
